FAERS Safety Report 9319416 (Version 1)
Quarter: 2013Q2

REPORT INFORMATION
  Report Type: Spontaneous
  Country: US (occurrence: US)
  Receive Date: 20130530
  Receipt Date: 20130530
  Transmission Date: 20140414
  Serious: No
  Sender: FDA-Public Use
  Company Number: US-GLAXOSMITHKLINE-A0974398A

PATIENT
  Age: 81 Year
  Sex: Female

DRUGS (1)
  1. FLOLAN [Suspect]
     Indication: PULMONARY HYPERTENSION
     Dosage: 24NGKM SEE DOSAGE TEXT
     Route: 042
     Dates: start: 19990927

REACTIONS (4)
  - Pain in jaw [Unknown]
  - Diarrhoea [Unknown]
  - Dyspepsia [Unknown]
  - Decreased appetite [Unknown]
